FAERS Safety Report 7285589-X (Version None)
Quarter: 2011Q1

REPORT INFORMATION
  Report Type: 
  Country: None (occurrence: None)
  Receive Date: 20110210
  Receipt Date: 20110207
  Transmission Date: 20110831
  Serious: Yes (Hospitalization)
  Sender: FDA-Public Use
  Company Number: A0779249A

PATIENT
  Age: 58 Year
  Sex: Female
  Weight: 76.4 kg

DRUGS (18)
  1. ZETIA [Concomitant]
  2. VYTORIN [Concomitant]
  3. AVANDIA [Suspect]
     Indication: DIABETES MELLITUS
     Dosage: 8MG PER DAY
     Route: 048
     Dates: start: 20020228, end: 20070901
  4. BYETTA [Concomitant]
  5. NORVASC [Concomitant]
  6. NAPROXEN [Concomitant]
  7. ATENOLOL [Concomitant]
  8. QUININE SULFATE [Concomitant]
  9. GLYBURIDE [Concomitant]
  10. GLUCOTROL [Concomitant]
  11. LIPITOR [Concomitant]
  12. ALTACE [Concomitant]
  13. METOPROLOL [Concomitant]
  14. ZOCOR [Concomitant]
  15. CRESTOR [Concomitant]
  16. FOSINOPRIL SODIUM [Concomitant]
  17. METFORMIN [Concomitant]
  18. PRANDIN [Concomitant]

REACTIONS (4)
  - MYOCARDIAL INFARCTION [None]
  - THROMBOSIS [None]
  - CARDIAC FAILURE CONGESTIVE [None]
  - CORONARY ARTERY DISEASE [None]
